FAERS Safety Report 4755844-3 (Version None)
Quarter: 2005Q3

REPORT INFORMATION
  Report Type: 
  Country: None (occurrence: None)
  Receive Date: 20050830
  Receipt Date: 20050513
  Transmission Date: 20060218
  Serious: Yes (Other)
  Sender: FDA-Public Use
  Company Number: US-BRISTOL-MYERS SQUIBB COMPANY-12969143

PATIENT
  Age: 63 Year
  Sex: Male

DRUGS (2)
  1. ERBITUX [Suspect]
     Indication: COLORECTAL CANCER METASTATIC
     Dosage: REC'D 28 INFUSIONS
     Route: 042
  2. IRINOTECAN [Concomitant]
     Indication: COLORECTAL CANCER METASTATIC

REACTIONS (2)
  - RASH PAPULAR [None]
  - STAPHYLOCOCCAL INFECTION [None]
